FAERS Safety Report 15371625 (Version 6)
Quarter: 2019Q1

REPORT INFORMATION
  Report Type: Spontaneous
  Country: FR (occurrence: FR)
  Receive Date: 20180911
  Receipt Date: 20190311
  Transmission Date: 20190417
  Serious: Yes (Death, Other)
  Sender: FDA-Public Use
  Company Number: PHHY2018FR090254

PATIENT
  Age: 45 Year
  Sex: Male

DRUGS (20)
  1. OLANZAPINE. [Interacting]
     Active Substance: OLANZAPINE
     Dosage: 1 DOSAGE FORM, PM
     Route: 065
  2. CYAMEMAZINE [Suspect]
     Active Substance: CYAMEMAZINE
     Indication: INTENTIONAL OVERDOSE
  3. THERALENE [Suspect]
     Active Substance: TRIMEPRAZINE
     Indication: INTENTIONAL OVERDOSE
     Dosage: UNK
     Route: 065
  4. ZYPREXA [Suspect]
     Active Substance: OLANZAPINE
     Indication: SUICIDE ATTEMPT
  5. TERCIAN [Interacting]
     Active Substance: CYAMEMAZINE
     Indication: INTENTIONAL OVERDOSE
     Dosage: UNK
     Route: 065
  6. LYSANXIA [Concomitant]
     Active Substance: PRAZEPAM
     Dosage: 1 UG\LITRE, QD
     Route: 065
  7. OLANZAPINE. [Interacting]
     Active Substance: OLANZAPINE
     Dosage: 1 UG\LITRE QD
     Route: 065
  8. OXAZEPAM. [Interacting]
     Active Substance: OXAZEPAM
     Indication: SUICIDE ATTEMPT
  9. NORDAZEPAM [Interacting]
     Active Substance: NORDAZEPAM
     Indication: INTENTIONAL OVERDOSE
     Route: 065
  10. NORDAZEPAM [Interacting]
     Active Substance: NORDAZEPAM
     Indication: SUICIDE ATTEMPT
  11. ZYPREXA [Suspect]
     Active Substance: OLANZAPINE
     Indication: INTENTIONAL OVERDOSE
     Dosage: 10 MG, QN
     Route: 065
  12. LYSANXIA [Concomitant]
     Active Substance: PRAZEPAM
     Indication: INTENTIONAL OVERDOSE
     Dosage: 10 MG, QD
     Route: 065
  13. OLANZAPINE. [Suspect]
     Active Substance: OLANZAPINE
     Indication: PRODUCT USED FOR UNKNOWN INDICATION
     Dosage: 10 MG, QD
     Route: 065
  14. ALIMEMAZINE [Suspect]
     Active Substance: TRIMEPRAZINE
     Indication: PRODUCT USED FOR UNKNOWN INDICATION
     Route: 065
  15. TERCIAN [Interacting]
     Active Substance: CYAMEMAZINE
     Indication: SUICIDE ATTEMPT
  16. OXAZEPAM. [Interacting]
     Active Substance: OXAZEPAM
     Indication: INTENTIONAL OVERDOSE
     Dosage: UNK
     Route: 065
  17. MIANSERIN [Interacting]
     Active Substance: MIANSERIN
     Indication: INTENTIONAL OVERDOSE
     Dosage: UNK
     Route: 065
  18. MIANSERIN [Interacting]
     Active Substance: MIANSERIN
     Indication: SUICIDE ATTEMPT
  19. THERALENE [Suspect]
     Active Substance: TRIMEPRAZINE
     Indication: SUICIDE ATTEMPT
  20. CYAMEMAZINE [Suspect]
     Active Substance: CYAMEMAZINE
     Indication: SUICIDE ATTEMPT
     Route: 065

REACTIONS (11)
  - Toxicity to various agents [Fatal]
  - Altered state of consciousness [Fatal]
  - Cardiopulmonary failure [Fatal]
  - Pulmonary oedema [Fatal]
  - Completed suicide [Fatal]
  - Respiratory depression [Fatal]
  - Cardiovascular disorder [Fatal]
  - Intentional overdose [Fatal]
  - Hepatic cirrhosis [Fatal]
  - Overdose [Fatal]
  - Drug interaction [Unknown]
